FAERS Safety Report 9311932 (Version 1)
Quarter: 2013Q2

REPORT INFORMATION
  Report Type: Report from Study
  Country: EC (occurrence: EC)
  Receive Date: 20130528
  Receipt Date: 20130528
  Transmission Date: 20140414
  Serious: Yes (Hospitalization)
  Sender: FDA-Public Use
  Company Number: PHHY2013EC053172

PATIENT
  Age: 53 Year
  Sex: Female

DRUGS (1)
  1. EXFORGE HCT [Suspect]
     Indication: HYPERTENSION
     Dosage: 1 DF(160 MG VALS/ 5 MG AMLO/ 12.5 MG HYDRO) , QD
     Route: 048
     Dates: start: 2008

REACTIONS (3)
  - Epistaxis [Recovered/Resolved]
  - Blood pressure increased [Unknown]
  - Emotional distress [Unknown]
